FAERS Safety Report 9157829 (Version 1)
Quarter: 2013Q1

REPORT INFORMATION
  Report Type: Spontaneous
  Country: DK (occurrence: None)
  Receive Date: 20130213
  Receipt Date: 20130213
  Transmission Date: 20140127
  Serious: Yes (Hospitalization)
  Sender: FDA-Public Use
  Company Number: 2013MA001068

PATIENT
  Age: 17 Year
  Sex: Female

DRUGS (2)
  1. FEVERALL [Suspect]
     Indication: INTENTIONAL OVERDOSE
     Route: 048
     Dates: start: 20130130, end: 20130130
  2. VENTOLIN [Suspect]
     Dosage: 20 DF; X1; PO
     Route: 048
     Dates: start: 20130130, end: 20130130

REACTIONS (5)
  - Hypokalaemia [None]
  - Sinus tachycardia [None]
  - Nervousness [None]
  - Intentional drug misuse [None]
  - Intentional overdose [None]
